FAERS Safety Report 5346596-7 (Version None)
Quarter: 2007Q2

REPORT INFORMATION
  Report Type: 
  Country: None (occurrence: None)
  Receive Date: 20070605
  Receipt Date: 20070524
  Transmission Date: 20071010
  Serious: Yes (Disabling)
  Sender: FDA-Public Use
  Company Number: US-PFIZER INC-2007024549

PATIENT
  Sex: Female
  Weight: 44 kg

DRUGS (10)
  1. CHANTIX [Suspect]
     Indication: SMOKING CESSATION THERAPY
     Dates: start: 20070304, end: 20070318
  2. COREG [Concomitant]
  3. ALTACE [Concomitant]
  4. LASIX [Concomitant]
  5. POTASSIUM ACETATE [Concomitant]
  6. DIGOXIN [Concomitant]
  7. ACETYLSALICYLIC ACID SRT [Concomitant]
  8. DURAGESIC-100 [Concomitant]
  9. AMBIEN [Concomitant]
  10. LYRICA [Concomitant]

REACTIONS (5)
  - BEDRIDDEN [None]
  - INSOMNIA [None]
  - PAIN [None]
  - PRURITUS [None]
  - VOMITING [None]
